FAERS Safety Report 10243612 (Version 1)
Quarter: 2014Q2

REPORT INFORMATION
  Report Type: Spontaneous
  Country: US (occurrence: US)
  Receive Date: 20140618
  Receipt Date: 20140618
  Transmission Date: 20141212
  Serious: No
  Sender: FDA-Public Use
  Company Number: US-PFIZER INC-2014164250

PATIENT
  Age: 40 Year
  Sex: Male
  Weight: 67.57 kg

DRUGS (2)
  1. ADVIL PM [Suspect]
     Indication: PAIN
     Dosage: 25 MG, AS NEEDED
  2. ADVIL PM [Suspect]
     Indication: SLEEP DISORDER

REACTIONS (1)
  - Foreign body [Unknown]
